FAERS Safety Report 20237423 (Version 5)
Quarter: 2022Q1

REPORT INFORMATION
  Report Type: Other
  Country: US (occurrence: None)
  Receive Date: 20211228
  Receipt Date: 20220315
  Transmission Date: 20220423
  Serious: Yes (Hospitalization)
  Sender: FDA-Public Use
  Company Number: US-ROCHE-2984755

PATIENT
  Age: 57 Year
  Sex: Female
  Weight: 54.480 kg

DRUGS (4)
  1. OCREVUS [Suspect]
     Active Substance: OCRELIZUMAB
     Indication: Multiple sclerosis
     Dosage: 08/DEC/2020, 21/JUN/2021?300 MG EVERY 6 MONTHS
     Route: 042
     Dates: start: 20201208
  2. OCREVUS [Suspect]
     Active Substance: OCRELIZUMAB
     Dosage: STARTED ABOUT 6 YEARS AGO
     Route: 042
     Dates: end: 20210621
  3. GABAPENTIN [Concomitant]
     Active Substance: GABAPENTIN
  4. VIMPAT [Concomitant]
     Active Substance: LACOSAMIDE

REACTIONS (7)
  - COVID-19 [Recovered/Resolved]
  - Urinary tract infection [Recovered/Resolved]
  - Encephalopathy [Not Recovered/Not Resolved]
  - Memory impairment [Not Recovered/Not Resolved]
  - Headache [Recovered/Resolved]
  - Pain [Recovered/Resolved]
  - Off label use [Unknown]

NARRATIVE: CASE EVENT DATE: 20211201
